FAERS Safety Report 25167110 (Version 8)
Quarter: 2025Q4

REPORT INFORMATION
  Report Type: Report from Study
  Country: US (occurrence: US)
  Receive Date: 20250407
  Receipt Date: 20251020
  Transmission Date: 20260117
  Serious: Yes (Death, Hospitalization)
  Sender: RECORDATI
  Company Number: US-ORPHANEU-2025001788

PATIENT
  Sex: Female
  Weight: 147.39 kg

DRUGS (44)
  1. ISTURISA [Suspect]
     Active Substance: OSILODROSTAT PHOSPHATE
     Indication: Pituitary-dependent Cushing^s syndrome
     Dosage: 2 MG, BID
     Dates: start: 2013
  2. ISTURISA [Suspect]
     Active Substance: OSILODROSTAT PHOSPHATE
     Dosage: 4 MILLIGRAM, BID
     Dates: start: 2024, end: 2024
  3. ISTURISA [Suspect]
     Active Substance: OSILODROSTAT PHOSPHATE
     Dosage: 2 MILLIGRAM, BID
     Route: 048
     Dates: start: 20241113, end: 202503
  4. ISTURISA [Suspect]
     Active Substance: OSILODROSTAT PHOSPHATE
     Dosage: 2 MG, BID
     Route: 048
     Dates: start: 202503, end: 2025
  5. ISTURISA [Suspect]
     Active Substance: OSILODROSTAT PHOSPHATE
     Dosage: 2 MG, BID
     Route: 048
     Dates: start: 202506, end: 202506
  6. ISTURISA [Suspect]
     Active Substance: OSILODROSTAT PHOSPHATE
     Dosage: 2 MG, BID
     Route: 048
     Dates: start: 202506, end: 2025
  7. ISTURISA [Suspect]
     Active Substance: OSILODROSTAT PHOSPHATE
     Dosage: 6 MG DAILY
     Route: 048
     Dates: start: 2025, end: 2025
  8. ISTURISA [Suspect]
     Active Substance: OSILODROSTAT PHOSPHATE
     Dosage: 4 MG, BID
     Route: 048
     Dates: start: 2025
  9. ABILIFY [Concomitant]
     Active Substance: ARIPIPRAZOLE
     Indication: Bipolar II disorder
     Dosage: 30 MG, QD (TABLET) PM
     Route: 048
     Dates: start: 20230704, end: 20250620
  10. ALBUTEROL SULFATE [Concomitant]
     Active Substance: ALBUTEROL SULFATE
     Indication: Product used for unknown indication
     Dosage: 108 (90 BASE), PRN (INHALLATION AEROSOL)
     Dates: start: 20230102
  11. LIPITOR [Concomitant]
     Active Substance: ATORVASTATIN CALCIUM
     Indication: Blood cholesterol
     Dosage: 20 MG, QD (TABLET)
     Route: 048
     Dates: start: 20240227
  12. CELEBREX [Concomitant]
     Active Substance: CELECOXIB
     Indication: Osteoarthritis
     Dosage: 100 MG, BID (CAPSULE)
     Route: 048
     Dates: start: 20210101
  13. CYMBALTA [Concomitant]
     Active Substance: DULOXETINE HYDROCHLORIDE
     Indication: Depression
     Dosage: 60 MG, QD (DELAYED RELEASE CAPSULE) AM
     Route: 048
     Dates: start: 20130303, end: 20250620
  14. CYMBALTA [Concomitant]
     Active Substance: DULOXETINE HYDROCHLORIDE
     Indication: Osteoarthritis
  15. DEPAKOTE [Concomitant]
     Active Substance: DIVALPROEX SODIUM
     Indication: Product used for unknown indication
     Dosage: 250 MG, TID (EXTENDED MDELAYED RELEASE TABLET)
     Route: 048
     Dates: start: 20220505, end: 202506
  16. DEPAKOTE [Concomitant]
     Active Substance: DIVALPROEX SODIUM
     Dosage: 250 MG, QD (EXTENDED MDELAYED RELEASE TABLET)
     Route: 048
     Dates: start: 2025
  17. DESMOPRESSIN ACETATE [Concomitant]
     Active Substance: DESMOPRESSIN ACETATE
     Indication: Product used for unknown indication
     Dosage: 0.2 MG, QD (TABLET)
     Route: 048
     Dates: start: 20221010
  18. DICYCLOMINE HYDROCHLORIDE [Concomitant]
     Active Substance: DICYCLOMINE HYDROCHLORIDE
     Indication: Product used for unknown indication
     Dosage: 10 MG, TID (CAPSULE)
     Route: 048
     Dates: start: 20180101
  19. FUROSEMIDE [Concomitant]
     Active Substance: FUROSEMIDE
     Indication: Product used for unknown indication
     Dosage: 40 MG, QD (TABLET)
     Route: 048
     Dates: start: 20250131
  20. GABAPENTIN [Concomitant]
     Active Substance: GABAPENTIN
     Indication: Pain
     Dosage: 800 MG, TID (TABLET)
     Route: 048
     Dates: start: 20220202
  21. GABAPENTIN [Concomitant]
     Active Substance: GABAPENTIN
     Indication: Neuropathy peripheral
  22. LAMICTAL [Concomitant]
     Active Substance: LAMOTRIGINE
     Indication: Product used for unknown indication
     Dosage: 75 MG, QD (TABLET)
     Route: 048
     Dates: start: 20220101, end: 20250620
  23. LEVOTHYROXINE SODIUM [Concomitant]
     Active Substance: LEVOTHYROXINE SODIUM
     Indication: Pituitary-dependent Cushing^s syndrome
     Dosage: 75 MICROGRAM, QD (TABLET) (1 HOUR BEFORE FOOD IN AM)
     Route: 048
     Dates: start: 20220909
  24. LEVOTHYROXINE SODIUM [Concomitant]
     Active Substance: LEVOTHYROXINE SODIUM
     Indication: Hypothyroidism
  25. LITHIUM CARBONATE [Concomitant]
     Active Substance: LITHIUM CARBONATE
     Indication: Product used for unknown indication
     Dosage: 450 MG, QD (EXTENDED RELEASE TABLET)
     Route: 048
     Dates: start: 20010606, end: 20250620
  26. VITAMINS [Concomitant]
     Active Substance: VITAMINS
     Indication: Product used for unknown indication
     Dosage: 1 TABLET, QD
     Route: 048
     Dates: start: 20220801
  27. OMEGA-3 FATTY ACIDS [Concomitant]
     Active Substance: OMEGA-3 FATTY ACIDS
     Indication: Product used for unknown indication
     Dosage: 1000 MG, BID
     Route: 048
     Dates: start: 20240227
  28. OZEMPIC [Concomitant]
     Active Substance: SEMAGLUTIDE
     Indication: Product used for unknown indication
     Dosage: 2MG/1.5 ML, QW (1MG/DOSE) (SUBCUTANEOUS SOLUTION)
     Route: 058
     Dates: start: 20240215, end: 2025
  29. PEPCID AC [Concomitant]
     Active Substance: FAMOTIDINE
     Indication: Gastrooesophageal reflux disease
     Dosage: 20 MG, QD (TABLET)
     Route: 048
     Dates: start: 20180808
  30. Rephresh pro b [Concomitant]
     Indication: Product used for unknown indication
     Dosage: 1 CAPSULE, QD
     Route: 048
     Dates: start: 20211111
  31. SPIRONOLACTONE [Concomitant]
     Active Substance: SPIRONOLACTONE
     Indication: Product used for unknown indication
     Dosage: 25 MG, QD (TABLET)
     Route: 048
     Dates: start: 20240913
  32. TYLENOL [Concomitant]
     Active Substance: ACETAMINOPHEN
     Indication: Product used for unknown indication
     Dosage: 500 MG, PRN (TABLET)
     Route: 048
     Dates: start: 20001212
  33. XANAX [Concomitant]
     Active Substance: ALPRAZOLAM
     Indication: Panic attack
     Dosage: 0.5 MILLIGRAM, PRN (AS NEEDED)
  34. BENTYL [Concomitant]
     Active Substance: DICYCLOMINE HYDROCHLORIDE
     Indication: Irritable bowel syndrome
     Dosage: 10 MILLIGRAM, TID (30 MILLIGRAM)
  35. BENTYL [Concomitant]
     Active Substance: DICYCLOMINE HYDROCHLORIDE
     Indication: Diarrhoea
  36. LASIX [Concomitant]
     Active Substance: FUROSEMIDE
     Indication: Product used for unknown indication
     Dosage: 40 MG, QD (AM)
  37. COGENTIN [Concomitant]
     Active Substance: BENZTROPINE MESYLATE
     Indication: Product used for unknown indication
     Dosage: 2 MG, QD AT BED TIME
  38. NYSTATIN [Concomitant]
     Active Substance: NYSTATIN
     Indication: Product used for unknown indication
     Dosage: UNK, POWDER
  39. OXYBUTYNIN [Concomitant]
     Active Substance: OXYBUTYNIN
     Indication: Product used for unknown indication
     Dosage: 10 MG, QD BED TIME
  40. GEMTESA [Concomitant]
     Active Substance: VIBEGRON
     Indication: Hypertonic bladder
     Dosage: 75 MG, QD
  41. MIDAMOR [Concomitant]
     Active Substance: AMILORIDE HYDROCHLORIDE
     Indication: Cardiac failure chronic
     Dosage: 0.5 MG, QD (AM)
  42. MIDAMOR [Concomitant]
     Active Substance: AMILORIDE HYDROCHLORIDE
     Indication: Hypertension
  43. MAGNESIUM GLYCINATE [Concomitant]
     Active Substance: MAGNESIUM GLYCINATE
     Indication: Product used for unknown indication
     Dosage: 1000 MG
  44. METOPROLOL [Concomitant]
     Active Substance: METOPROLOL
     Indication: Hypertension
     Dosage: 50 MG, QD (AM)

REACTIONS (10)
  - Myocardial infarction [Fatal]
  - Ventricular tachycardia [Recovered/Resolved]
  - Bipolar I disorder [Unknown]
  - Speech disorder [Not Recovered/Not Resolved]
  - Emotional distress [Not Recovered/Not Resolved]
  - Skin discolouration [Not Recovered/Not Resolved]
  - Hypoaesthesia [Unknown]
  - Tremor [Unknown]
  - Depression [Not Recovered/Not Resolved]
  - Product dose omission issue [Recovered/Resolved]

NARRATIVE: CASE EVENT DATE: 20250101
